FAERS Safety Report 21044259 (Version 5)
Quarter: 2022Q3

REPORT INFORMATION
  Report Type: Report from Study
  Country: US (occurrence: US)
  Receive Date: 20220705
  Receipt Date: 20220803
  Transmission Date: 20221027
  Serious: Yes (Other)
  Sender: FDA-Public Use
  Company Number: US-JNJFOC-20220420680

PATIENT
  Age: 75 Year
  Sex: Female
  Weight: 80 kg

DRUGS (15)
  1. SELEXIPAG [Suspect]
     Active Substance: SELEXIPAG
     Indication: Pulmonary hypertension
     Route: 048
     Dates: start: 20220325
  2. SELEXIPAG [Suspect]
     Active Substance: SELEXIPAG
     Route: 048
  3. SELEXIPAG [Suspect]
     Active Substance: SELEXIPAG
     Route: 048
     Dates: start: 20220506
  4. SELEXIPAG [Suspect]
     Active Substance: SELEXIPAG
     Route: 048
  5. SELEXIPAG [Suspect]
     Active Substance: SELEXIPAG
     Route: 048
  6. SELEXIPAG [Suspect]
     Active Substance: SELEXIPAG
     Dosage: 800 MCG PILLS , 200 MCG PILL
     Route: 048
     Dates: start: 20220611
  7. SELEXIPAG [Suspect]
     Active Substance: SELEXIPAG
     Dosage: 1000  UG IN THE MORNING AND 1200 UG IN THE EVENING
     Route: 048
     Dates: start: 20220525
  8. SELEXIPAG [Suspect]
     Active Substance: SELEXIPAG
     Dosage: 1400MCG IN MORNING AND 1600MCG IN THE EVENING
     Route: 048
  9. SELEXIPAG [Suspect]
     Active Substance: SELEXIPAG
     Route: 048
  10. SELEXIPAG [Suspect]
     Active Substance: SELEXIPAG
     Route: 048
  11. DURAGESIC [Suspect]
     Active Substance: FENTANYL
     Indication: Sciatica
     Route: 065
     Dates: start: 2022
  12. LYRICA [Suspect]
     Active Substance: PREGABALIN
     Indication: Back pain
     Route: 065
     Dates: start: 20220428
  13. TADALAFIL [Concomitant]
     Active Substance: TADALAFIL
  14. AMBRISENTAN [Concomitant]
     Active Substance: AMBRISENTAN
  15. DILTIAZEM [Concomitant]
     Active Substance: DILTIAZEM

REACTIONS (22)
  - Sciatica [Not Recovered/Not Resolved]
  - Oxygen saturation decreased [Not Recovered/Not Resolved]
  - Dizziness [Not Recovered/Not Resolved]
  - Weight decreased [Unknown]
  - Oedema [Unknown]
  - Throat irritation [Not Recovered/Not Resolved]
  - Dyskinesia [Unknown]
  - Dyspnoea [Unknown]
  - Confusional state [Not Recovered/Not Resolved]
  - Tooth infection [Recovered/Resolved]
  - Ocular icterus [Not Recovered/Not Resolved]
  - Sinusitis [Not Recovered/Not Resolved]
  - Diarrhoea [Not Recovered/Not Resolved]
  - Joint swelling [Unknown]
  - Fatigue [Not Recovered/Not Resolved]
  - Peripheral swelling [Unknown]
  - Nasal congestion [Unknown]
  - Pulmonary congestion [Not Recovered/Not Resolved]
  - Constipation [Unknown]
  - Cough [Unknown]
  - Laboratory test abnormal [Unknown]
  - Asthenia [Unknown]

NARRATIVE: CASE EVENT DATE: 20220101
